FAERS Safety Report 7503240-8 (Version None)
Quarter: 2011Q2

REPORT INFORMATION
  Report Type: 
  Country: None (occurrence: None)
  Receive Date: 20110525
  Receipt Date: 20100826
  Transmission Date: 20111010
  Serious: No
  Sender: FDA-Public Use
  Company Number: A0877903A

PATIENT
  Age: 66 Year
  Sex: Female

DRUGS (13)
  1. MUPIROCIN [Suspect]
  2. ACIPHEX [Concomitant]
  3. FUROSEMIDE [Concomitant]
  4. AMITRIPTYLINE HCL [Concomitant]
  5. METHOCARBAMOL [Concomitant]
  6. SYNTHROID [Concomitant]
  7. XANAX [Concomitant]
  8. LISINOPRIL [Concomitant]
  9. RANITIDINE HCL [Concomitant]
  10. VITAMIN D [Concomitant]
  11. BACTROBAN [Suspect]
     Indication: CHRONIC SINUSITIS
     Dosage: 1APP PER DAY
     Route: 045
     Dates: start: 20050601
  12. RHINOCORT [Concomitant]
  13. AMLODIPINE [Concomitant]

REACTIONS (5)
  - NASAL ULCER [None]
  - EPISTAXIS [None]
  - PRODUCT QUALITY ISSUE [None]
  - OROPHARYNGEAL PAIN [None]
  - MOUTH HAEMORRHAGE [None]
